FAERS Safety Report 22008114 (Version 1)
Quarter: 2023Q1

REPORT INFORMATION
  Report Type: Spontaneous
  Country: CN (occurrence: None)
  Receive Date: 20230218
  Receipt Date: 20230218
  Transmission Date: 20230417
  Serious: Yes (Other)
  Sender: FDA-Public Use
  Company Number: CN-ROCHE-3286987

PATIENT
  Age: 41 Year
  Sex: Female

DRUGS (10)
  1. POLIVY [Suspect]
     Active Substance: POLATUZUMAB VEDOTIN-PIIQ
     Indication: Diffuse large B-cell lymphoma
     Dosage: POLA+RB+VENETOCLAX
     Route: 065
     Dates: start: 20220507
  2. POLIVY [Suspect]
     Active Substance: POLATUZUMAB VEDOTIN-PIIQ
     Dosage: POLA+RB+VENETOCLAX
     Route: 065
     Dates: start: 20220527
  3. BENDAMUSTINE [Concomitant]
     Active Substance: BENDAMUSTINE
  4. RITUXIMAB [Concomitant]
     Active Substance: RITUXIMAB
  5. VENETOCLAX [Concomitant]
     Active Substance: VENETOCLAX
  6. GEMCITABINE [Concomitant]
     Active Substance: GEMCITABINE
  7. OXALIPLATIN [Concomitant]
     Active Substance: OXALIPLATIN
  8. FLUDARABINE [Concomitant]
     Active Substance: FLUDARABINE PHOSPHATE
  9. CYCLOPHOSPHAMIDE [Concomitant]
     Active Substance: CYCLOPHOSPHAMIDE
  10. TAFASITAMAB-CXIX [Concomitant]
     Active Substance: TAFASITAMAB-CXIX

REACTIONS (1)
  - Gastrointestinal haemorrhage [Unknown]
